FAERS Safety Report 9758274 (Version 1)
Quarter: 2013Q4

REPORT INFORMATION
  Report Type: Spontaneous
  Country: US (occurrence: US)
  Receive Date: 20131216
  Receipt Date: 20131216
  Transmission Date: 20140711
  Serious: No
  Sender: FDA-Public Use
  Company Number: US-TEVA-412271USA

PATIENT
  Age: 24 Year
  Sex: Female
  Weight: 73.09 kg

DRUGS (3)
  1. PARAGARD 380A [Suspect]
     Indication: CONTRACEPTION
     Route: 015
     Dates: start: 20130404, end: 20130612
  2. ALBUTEROL [Concomitant]
     Indication: ASTHMA
     Dosage: 2 PUFFS PRN
  3. RANITIDINE [Concomitant]
     Indication: GASTROOESOPHAGEAL REFLUX DISEASE
     Dosage: 300 MILLIGRAM DAILY;
     Route: 048

REACTIONS (1)
  - Device expulsion [Recovered/Resolved]
